FAERS Safety Report 23471247 (Version 2)
Quarter: 2024Q4

REPORT INFORMATION
  Report Type: Spontaneous
  Country: CA (occurrence: CA)
  Receive Date: 20240202
  Receipt Date: 20241218
  Transmission Date: 20250115
  Serious: Yes (Hospitalization, Other)
  Sender: MYLAN
  Company Number: CA-MYLANLABS-2024M1010377

PATIENT
  Age: 8 Year
  Sex: Male
  Weight: 23 kg

DRUGS (11)
  1. CELECOXIB [Suspect]
     Active Substance: CELECOXIB
     Indication: Medulloblastoma
     Dosage: 200 MILLIGRAM, BID, (2 EVERY 1 DAY)
     Route: 065
  2. CELECOXIB [Suspect]
     Active Substance: CELECOXIB
     Dosage: 600 MILLIGRAM
     Route: 065
  3. ISOTRETINOIN [Suspect]
     Active Substance: ISOTRETINOIN
     Indication: Medulloblastoma
     Dosage: 90 MILLIGRAM,CYCLE
     Route: 065
  4. ISOTRETINOIN [Suspect]
     Active Substance: ISOTRETINOIN
     Dosage: 90 MILLIGRAM
     Route: 065
  5. ETOPOSIDE [Suspect]
     Active Substance: ETOPOSIDE
     Indication: Medulloblastoma
     Dosage: 50 MILLIGRAM
     Route: 065
  6. HYDROCORTISONE [Concomitant]
     Active Substance: HYDROCORTISONE
     Dosage: UNK
     Route: 065
  7. LEVOTHYROXINE SODIUM [Concomitant]
     Active Substance: LEVOTHYROXINE SODIUM
     Dosage: UNK
     Route: 065
  8. ONDANSETRON [Concomitant]
     Active Substance: ONDANSETRON
     Dosage: UNK
     Route: 065
  9. OSELTAMIVIR [Concomitant]
     Active Substance: OSELTAMIVIR
     Dosage: UNK
     Route: 065
  10. SULFAMETHOXAZOLE\TRIMETHOPRIM [Concomitant]
     Active Substance: SULFAMETHOXAZOLE\TRIMETHOPRIM
     Dosage: UNK
     Route: 065
  11. SOMATROPIN [Concomitant]
     Active Substance: SOMATROPIN
     Dosage: UNK
     Route: 065

REACTIONS (2)
  - Neutropenic colitis [Unknown]
  - Off label use [Unknown]
